FAERS Safety Report 6237240-5 (Version None)
Quarter: 2009Q2

REPORT INFORMATION
  Report Type: 
  Country: None (occurrence: None)
  Receive Date: 20090619
  Receipt Date: 20090212
  Transmission Date: 20091009
  Serious: No
  Sender: FDA-Public Use
  Company Number: US-BAYER-200910595BCC

PATIENT
  Age: 73 Year
  Sex: Male
  Weight: 94 kg

DRUGS (5)
  1. ALEVE (CAPLET) [Suspect]
     Indication: MYALGIA
     Dosage: TOTAL DAILY DOSE: 440 MG  UNIT DOSE: 220 MG
     Route: 048
     Dates: start: 20081201, end: 20090205
  2. LANTUS [Concomitant]
  3. SPRING VALLEY VITAMIN D [Concomitant]
  4. VITAMIN C SUPPLEMENT [Concomitant]
  5. UNKNOWN JOINT MEDICATION [Concomitant]

REACTIONS (1)
  - DIZZINESS [None]
